FAERS Safety Report 9118626 (Version 2)
Quarter: 2013Q2

REPORT INFORMATION
  Report Type: Spontaneous
  Country: US (occurrence: US)
  Receive Date: 20130226
  Receipt Date: 20130605
  Transmission Date: 20140414
  Serious: No
  Sender: FDA-Public Use
  Company Number: US-009507513-1302USA011166

PATIENT
  Age: 47 Year
  Sex: Female
  Weight: 129.71 kg

DRUGS (6)
  1. JANUVIA [Suspect]
     Indication: DIABETES MELLITUS
     Dosage: 100 MG, QD
     Route: 048
     Dates: start: 2009, end: 20130510
  2. METFORMIN [Concomitant]
  3. RANITIDINE [Concomitant]
  4. PRAVASTATIN SODIUM [Concomitant]
  5. MONTELUKAST SODIUM [Concomitant]
  6. ATENOLOL [Concomitant]

REACTIONS (7)
  - Joint swelling [Recovering/Resolving]
  - Eye pain [Recovering/Resolving]
  - Blood glucose increased [Recovered/Resolved]
  - Rash [Recovering/Resolving]
  - Fatigue [Recovering/Resolving]
  - Headache [Recovering/Resolving]
  - Drug dose omission [Unknown]
